FAERS Safety Report 24873946 (Version 1)
Quarter: 2025Q1

REPORT INFORMATION
  Report Type: Spontaneous
  Country: US (occurrence: US)
  Receive Date: 20250122
  Receipt Date: 20250122
  Transmission Date: 20250409
  Serious: Yes (Hospitalization, Other)
  Sender: SANOFI AVENTIS
  Company Number: US-SA-2025SA020323

PATIENT
  Age: 74 Year
  Sex: Male
  Weight: 84.09 kg

DRUGS (4)
  1. DUPIXENT [Suspect]
     Active Substance: DUPILUMAB
     Indication: Dermatitis allergic
     Dosage: 300 MG, QOW
     Route: 058
     Dates: start: 2023
  2. DUPIXENT [Suspect]
     Active Substance: DUPILUMAB
     Indication: Dermatitis atopic
  3. PLAVIX [Suspect]
     Active Substance: CLOPIDOGREL BISULFATE
     Route: 065
  4. COVID-19 VACCINE [Concomitant]
     Indication: Pneumonia

REACTIONS (5)
  - Skin haemorrhage [Not Recovered/Not Resolved]
  - Cataract [Not Recovered/Not Resolved]
  - Pneumonia [Not Recovered/Not Resolved]
  - Injection site pain [Recovered/Resolved]
  - Stent placement [Unknown]

NARRATIVE: CASE EVENT DATE: 20240412
